FAERS Safety Report 5266959-8 (Version None)
Quarter: 2007Q1

REPORT INFORMATION
  Report Type: 
  Country: None (occurrence: None)
  Receive Date: 20070316
  Receipt Date: 20011001
  Transmission Date: 20070707
  Serious: Yes (Life-Threatening)
  Sender: FDA-Public Use
  Company Number: US-BRISTOL-MYERS SQUIBB COMPANY-13552427

PATIENT
  Age: 41 Year
  Sex: Male

DRUGS (7)
  1. SUSTIVA [Suspect]
     Indication: HIV INFECTION
     Route: 048
     Dates: start: 19980528
  2. HYDREA [Concomitant]
  3. ABACAVIR [Concomitant]
  4. ADEFOVIR DIPIVOXIL KIT [Concomitant]
  5. STAVUDINE [Concomitant]
  6. LAMIVUDINE [Concomitant]
  7. DIDANOSINE [Concomitant]

REACTIONS (1)
  - BLOOD CREATINE PHOSPHOKINASE INCREASED [None]
